FAERS Safety Report 12315433 (Version 1)
Quarter: 2016Q2

REPORT INFORMATION
  Report Type: Spontaneous
  Country: RU (occurrence: RU)
  Receive Date: 20160428
  Receipt Date: 20160428
  Transmission Date: 20160815
  Serious: Yes (Hospitalization)
  Sender: FDA-Public Use
  Company Number: RU-VIIV HEALTHCARE LIMITED-RU2015GSK053981

PATIENT
  Age: 31 Year
  Sex: Female

DRUGS (4)
  1. ZIDOVUDINE. [Suspect]
     Active Substance: ZIDOVUDINE
     Indication: PROPHYLAXIS AGAINST HIV INFECTION
     Dosage: 300 UNK, UNK
     Dates: start: 20150319, end: 2015
  2. KALETRA [Suspect]
     Active Substance: LOPINAVIR\RITONAVIR
     Indication: PROPHYLAXIS AGAINST HIV INFECTION
     Dosage: UNK
     Dates: start: 20150319, end: 20150421
  3. INVIRASE [Suspect]
     Active Substance: SAQUINAVIR MESYLATE
     Indication: PROPHYLAXIS AGAINST HIV INFECTION
     Dosage: UNK
     Dates: start: 20150421, end: 2015
  4. LAMIVUDINE. [Suspect]
     Active Substance: LAMIVUDINE
     Indication: PROPHYLAXIS AGAINST HIV INFECTION
     Dosage: UNK
     Dates: start: 20150319, end: 2015

REACTIONS (11)
  - Hyperhidrosis [Unknown]
  - Haemoglobin decreased [Unknown]
  - Exposure during pregnancy [Recovered/Resolved]
  - Alanine aminotransferase increased [Recovered/Resolved]
  - Palpitations [Unknown]
  - Abdominal discomfort [Not Recovered/Not Resolved]
  - Live birth [Unknown]
  - Dysgeusia [Not Recovered/Not Resolved]
  - Hot flush [Unknown]
  - Chromaturia [Unknown]
  - Pruritus [Not Recovered/Not Resolved]

NARRATIVE: CASE EVENT DATE: 2015
